FAERS Safety Report 9419860 (Version 1)
Quarter: 2013Q3

REPORT INFORMATION
  Report Type: Spontaneous
  Country: JP (occurrence: JP)
  Receive Date: 20130725
  Receipt Date: 20130725
  Transmission Date: 20140515
  Serious: Yes (Other)
  Sender: FDA-Public Use
  Company Number: JP-VERTEX PHARMACEUTICALS INC-2013-008248

PATIENT
  Age: 7 Decade
  Sex: Female

DRUGS (3)
  1. TELAVIC [Suspect]
     Dosage: UNK
     Route: 048
     Dates: start: 201201, end: 2012
  2. UNKNOWN DRUG [Suspect]
     Indication: CHRONIC HEPATITIS C
     Dosage: UNK
     Route: 058
     Dates: start: 201201, end: 2012
  3. UNKNOWN DRUG [Suspect]
     Indication: CHRONIC HEPATITIS C
     Dosage: UNK
     Route: 048
     Dates: start: 201201, end: 2012

REACTIONS (3)
  - Rash [Unknown]
  - Anaemia [Unknown]
  - Osteonecrosis [Unknown]
